FAERS Safety Report 6100040-0 (Version None)
Quarter: 2009Q1

REPORT INFORMATION
  Report Type: 
  Country: None (occurrence: None)
  Receive Date: 20090303
  Receipt Date: 20090220
  Transmission Date: 20090719
  Serious: Yes (Hospitalization)
  Sender: FDA-Public Use
  Company Number: B0560737A

PATIENT
  Age: 71 Year
  Sex: Male

DRUGS (6)
  1. FORTUM [Suspect]
     Indication: COLOSTOMY INFECTION
     Dosage: 3G PER DAY
     Route: 042
     Dates: start: 20081211, end: 20081214
  2. VANCOMYCIN HCL [Concomitant]
     Indication: COLOSTOMY INFECTION
     Dates: start: 20081126
  3. AMIKLIN [Concomitant]
     Indication: COLOSTOMY INFECTION
     Dates: start: 20081126
  4. TIENAM [Concomitant]
     Indication: COLOSTOMY INFECTION
     Dates: start: 20081204
  5. CIFLOX [Concomitant]
     Indication: COLOSTOMY INFECTION
     Route: 048
  6. PIPERACILLIN [Concomitant]
     Indication: COLOSTOMY INFECTION
     Route: 065
     Dates: start: 20081209

REACTIONS (4)
  - ERYTHEMA [None]
  - HYPERSENSITIVITY [None]
  - RASH [None]
  - RASH MACULO-PAPULAR [None]
